FAERS Safety Report 17872591 (Version 2)
Quarter: 2020Q3

REPORT INFORMATION
  Report Type: Other
  Country: US (occurrence: US)
  Receive Date: 20200608
  Receipt Date: 20200714
  Transmission Date: 20201103
  Serious: No
  Sender: FDA-Public Use
  Company Number: US-RC OUTSOURCING, LLC-2085549

PATIENT
  Age: 77 Year
  Sex: Female

DRUGS (1)
  1. BEVACIZUMAB 1.25 MG/0.05 ML [Suspect]
     Active Substance: BEVACIZUMAB
     Route: 031

REACTIONS (1)
  - Endophthalmitis [None]
